FAERS Safety Report 4647675-X (Version None)
Quarter: 2005Q2

REPORT INFORMATION
  Report Type: 
  Country: None (occurrence: None)
  Receive Date: 20050427
  Receipt Date: 20050418
  Transmission Date: 20051028
  Serious: Yes (Other)
  Sender: FDA-Public Use
  Company Number: 2005060602

PATIENT
  Age: 10 Year
  Sex: Male
  Weight: 90 kg

DRUGS (1)
  1. BENYLIN [Suspect]
     Indication: COUGH
     Dosage: 1 TEASPOONFUL ONCE, ORAL
     Route: 048
     Dates: start: 20050414, end: 20050414

REACTIONS (1)
  - HYPERSENSITIVITY [None]
